FAERS Safety Report 6372872-5 (Version None)
Quarter: 2009Q3

REPORT INFORMATION
  Report Type: 
  Country: None (occurrence: None)
  Receive Date: 20090924
  Receipt Date: 20090625
  Transmission Date: 20100115
  Serious: No
  Sender: FDA-Public Use
  Company Number: US-ASTRAZENECA-2008UW26981

PATIENT
  Age: 55 Year
  Sex: Female
  Weight: 108.9 kg

DRUGS (2)
  1. SEROQUEL [Suspect]
     Indication: DEPRESSION
     Route: 048
     Dates: start: 20040701
  2. SEROQUEL [Suspect]
     Indication: BIPOLAR DISORDER
     Route: 048
     Dates: start: 20040701

REACTIONS (3)
  - ACCIDENT AT WORK [None]
  - DIABETES MELLITUS [None]
  - URINARY INCONTINENCE [None]
